FAERS Safety Report 4970080-3 (Version None)
Quarter: 2006Q2

REPORT INFORMATION
  Report Type: 
  Country: None (occurrence: None)
  Receive Date: 20060406
  Receipt Date: 20060317
  Transmission Date: 20061013
  Serious: Yes (Hospitalization)
  Sender: FDA-Public Use
  Company Number: US200601003868

PATIENT
  Age: 81 Year
  Sex: Female

DRUGS (2)
  1. FORTEO [Suspect]
     Dates: start: 20040601, end: 20051001
  2. FORTEO [Concomitant]

REACTIONS (10)
  - APPENDIX DISORDER [None]
  - DIARRHOEA [None]
  - DRUG INEFFECTIVE [None]
  - ILL-DEFINED DISORDER [None]
  - JAW DISORDER [None]
  - MALAISE [None]
  - MEDICAL DEVICE COMPLICATION [None]
  - PHARMACEUTICAL PRODUCT COMPLAINT [None]
  - TOOTH DISORDER [None]
  - TOOTH INFECTION [None]
